FAERS Safety Report 15701138 (Version 1)
Quarter: 2018Q4

REPORT INFORMATION
  Report Type: Spontaneous
  Country: US (occurrence: US)
  Receive Date: 20181207
  Receipt Date: 20181207
  Transmission Date: 20190205
  Serious: Yes (Death, Other)
  Sender: FDA-Public Use
  Company Number: US-NAPPMUNDI-USA-2018-0145393

PATIENT
  Age: 58 Year
  Sex: Male

DRUGS (1)
  1. OXYCODONE HYDROCHLORIDE (SIMILAR TO NDA 22-272) [Suspect]
     Active Substance: OXYCODONE HYDROCHLORIDE
     Indication: NECK PAIN
     Route: 048

REACTIONS (7)
  - Oxygen saturation decreased [Unknown]
  - Drug tolerance [Unknown]
  - Drug dependence [Unknown]
  - Overdose [Unknown]
  - Death [Fatal]
  - Respiratory depression [Unknown]
  - Intentional product misuse [Unknown]
